FAERS Safety Report 22956630 (Version 4)
Quarter: 2024Q1

REPORT INFORMATION
  Report Type: Spontaneous
  Country: US (occurrence: US)
  Receive Date: 20230919
  Receipt Date: 20240207
  Transmission Date: 20240410
  Serious: Yes (Other)
  Sender: FDA-Public Use
  Company Number: US-BEH-2023163114

PATIENT
  Age: 24 Year
  Sex: Female

DRUGS (6)
  1. HUMATE-P [Suspect]
     Active Substance: HUMAN COAGULATION FACTOR VIII/VON WILLEBRAND FACTOR COMPLEX
     Indication: Von Willebrand^s disease
     Dosage: 2400 INTERNATIONAL UNIT TWICE A MONTH
     Route: 042
     Dates: start: 202301
  2. HUMATE-P [Suspect]
     Active Substance: HUMAN COAGULATION FACTOR VIII/VON WILLEBRAND FACTOR COMPLEX
     Dosage: 2400 INTERNATIONAL UNI TWICE A MONTHT
     Route: 042
     Dates: start: 201603
  3. HUMATE-P [Suspect]
     Active Substance: HUMAN COAGULATION FACTOR VIII/VON WILLEBRAND FACTOR COMPLEX
     Dosage: 2400 INTERNATIONAL UNIT (2160-2640) ON THE FIRST DAY
     Route: 042
     Dates: start: 202310
  4. HUMATE-P [Suspect]
     Active Substance: HUMAN COAGULATION FACTOR VIII/VON WILLEBRAND FACTOR COMPLEX
     Dosage: 2400 INTERNATIONAL UNIT (2160-2640) TWO DAYS LATER
     Route: 042
     Dates: start: 202310
  5. HUMATE-P [Suspect]
     Active Substance: HUMAN COAGULATION FACTOR VIII/VON WILLEBRAND FACTOR COMPLEX
     Dosage: 2400 INTERNATIONAL UNIT, ON DAY 1 AND REPEAT SECOND DOSE 2 DAYS LATER
     Route: 042
     Dates: start: 201603
  6. SODIUM CHLORIDE [Concomitant]
     Active Substance: SODIUM CHLORIDE

REACTIONS (5)
  - Heavy menstrual bleeding [Unknown]
  - Heavy menstrual bleeding [Unknown]
  - Haemorrhage [Unknown]
  - Heavy menstrual bleeding [Recovered/Resolved]
  - Heavy menstrual bleeding [Recovered/Resolved]

NARRATIVE: CASE EVENT DATE: 20230821
